FAERS Safety Report 7183627-6 (Version None)
Quarter: 2010Q4

REPORT INFORMATION
  Report Type: 
  Country: None (occurrence: None)
  Receive Date: 20101220
  Receipt Date: 20101220
  Transmission Date: 20110411
  Serious: Yes (Hospitalization)
  Sender: FDA-Public Use
  Company Number: None

PATIENT
  Age: 60 Year
  Sex: Male
  Weight: 88 kg

DRUGS (8)
  1. COUMADIN [Suspect]
     Indication: DEEP VEIN THROMBOSIS
     Dosage: 5MG ALT 6MG DAILY PO  POST-OP RECENTLY
     Route: 048
  2. COUMADIN [Suspect]
     Indication: PULMONARY EMBOLISM
     Dosage: 5MG ALT 6MG DAILY PO  POST-OP RECENTLY
     Route: 048
  3. LOVENOX [Suspect]
     Indication: DEEP VEIN THROMBOSIS
     Dosage: 100MG Q12H SQ  RECENTLY POST-OP
     Route: 058
  4. LOVENOX [Suspect]
     Indication: PULMONARY EMBOLISM
     Dosage: 100MG Q12H SQ  RECENTLY POST-OP
     Route: 058
  5. FLAX [Concomitant]
  6. M.V.I. [Concomitant]
  7. NIACIN [Concomitant]
  8. VIT E [Concomitant]

REACTIONS (3)
  - GASTROINTESTINAL HAEMORRHAGE [None]
  - INTERNATIONAL NORMALISED RATIO DECREASED [None]
  - SYNCOPE [None]
